FAERS Safety Report 9779138 (Version 1)
Quarter: 2013Q4

REPORT INFORMATION
  Report Type: Spontaneous
  Country: NO (occurrence: NO)
  Receive Date: 20131223
  Receipt Date: 20131223
  Transmission Date: 20140711
  Serious: Yes (Death)
  Sender: FDA-Public Use
  Company Number: NO-NOVOPROD-375691

PATIENT
  Age: 84 Year
  Sex: Female

DRUGS (11)
  1. VICTOZA [Suspect]
     Indication: DIABETES MELLITUS
     Dates: start: 20130208, end: 20130226
  2. METFORMIN ORIFARM [Concomitant]
     Indication: DIABETES MELLITUS
     Route: 048
  3. VIVAL [Concomitant]
     Dosage: 1 TABL WHEN NEEDED
     Route: 048
  4. AFIPRAN [Concomitant]
     Indication: NAUSEA
     Dosage: UP TO 3 TABL A DAY
     Route: 048
  5. EXFORGE HCT [Concomitant]
     Indication: CARDIAC DISORDER
     Route: 048
  6. ALBYL-E [Concomitant]
     Indication: THROMBOSIS PROPHYLAXIS
     Route: 048
  7. PARALGIN FORTE [Concomitant]
     Indication: PAIN
     Dosage: UP TO 6 TABL A DAY
     Route: 048
  8. LASIX RETARD [Concomitant]
     Indication: DIURETIC THERAPY
     Route: 048
  9. TRIMETOPRIM [Concomitant]
     Indication: INFECTION
     Route: 048
  10. CARVEDILOL HEXAL [Concomitant]
     Indication: CARDIAC DISORDER
     Dosage: 1 TABL MORNING, 2 TABL EVENING
     Route: 048
  11. LEVAXIN [Concomitant]
     Indication: PRODUCT USED FOR UNKNOWN INDICATION
     Route: 048

REACTIONS (3)
  - Renal failure [Fatal]
  - Dehydration [Not Recovered/Not Resolved]
  - Nausea [Not Recovered/Not Resolved]
